FAERS Safety Report 6011359-6 (Version None)
Quarter: 2008Q4

REPORT INFORMATION
  Report Type: 
  Country: None (occurrence: None)
  Receive Date: 20081218
  Receipt Date: 20081206
  Transmission Date: 20090506
  Serious: Yes (Other)
  Sender: FDA-Public Use
  Company Number: US-PFIZER INC-2008091548

PATIENT
  Sex: Female
  Weight: 59 kg

DRUGS (9)
  1. DILANTIN [Suspect]
     Indication: EPILEPSY
     Route: 048
  2. PREDNISONE [Concomitant]
     Indication: SYSTEMIC LUPUS ERYTHEMATOSUS
     Dosage: UNK
     Route: 048
     Dates: start: 20080101
  3. VALSARTAN [Concomitant]
     Indication: HYPERTENSION
     Dosage: UNK
     Route: 048
  4. WARFARIN SODIUM [Concomitant]
     Indication: DEEP VEIN THROMBOSIS
     Dosage: UNK
     Route: 048
  5. WARFARIN SODIUM [Concomitant]
     Indication: PULMONARY EMBOLISM
  6. XANAX [Concomitant]
     Indication: ANXIETY
     Dosage: UNK
     Route: 048
  7. VICODIN [Concomitant]
  8. PLAQUENIL [Concomitant]
     Indication: SYSTEMIC LUPUS ERYTHEMATOSUS
     Dosage: UNK
     Route: 048
  9. LORTAB [Concomitant]
     Indication: ARTHRALGIA
     Dosage: UNK
     Route: 048

REACTIONS (5)
  - ANTICONVULSANT DRUG LEVEL DECREASED [None]
  - ANTICONVULSANT DRUG LEVEL INCREASED [None]
  - AURA [None]
  - CONVULSION [None]
  - DYSARTHRIA [None]
